FAERS Safety Report 5924082-0 (Version None)
Quarter: 2008Q4

REPORT INFORMATION
  Report Type: 
  Country: None (occurrence: None)
  Receive Date: 20081015
  Receipt Date: 20081001
  Transmission Date: 20090506
  Serious: Yes (Other)
  Sender: FDA-Public Use
  Company Number: A-CH2007-18938

PATIENT
  Age: 59 Year
  Sex: Female
  Weight: 68 kg

DRUGS (4)
  1. TRACLEER [Suspect]
     Indication: PULMONARY HYPERTENSION
     Dosage: 125 MG, BID, ORAL
     Route: 048
     Dates: start: 20040501, end: 20071220
  2. L-THYROXINE (LEVOTHYROXINE) [Concomitant]
  3. OMEPRAZOLE [Concomitant]
  4. SALAGEN [Concomitant]

REACTIONS (4)
  - EXTRAVASATION [None]
  - LEUKOCYTOCLASTIC VASCULITIS [None]
  - SKIN ULCER [None]
  - VASCULITIS NECROTISING [None]
